FAERS Safety Report 18583485 (Version 8)
Quarter: 2023Q4

REPORT INFORMATION
  Report Type: Other
  Country: US (occurrence: None)
  Receive Date: 20201207
  Receipt Date: 20231215
  Transmission Date: 20240109
  Serious: Yes (Other)
  Sender: FDA-Public Use
  Company Number: US-ROCHE-2722451

PATIENT
  Age: 64 Year
  Sex: Male

DRUGS (6)
  1. ACTEMRA [Suspect]
     Active Substance: TOCILIZUMAB
     Indication: Polymyalgia rheumatica
     Dosage: INJECT 162 MG SUBCUTANEOUSLY ONCE WEEKLY
     Route: 058
  2. ACTEMRA [Suspect]
     Active Substance: TOCILIZUMAB
  3. ACTEMRA [Suspect]
     Active Substance: TOCILIZUMAB
     Indication: Polymyalgia rheumatica
     Route: 042
  4. ACTEMRA [Suspect]
     Active Substance: TOCILIZUMAB
     Route: 042
  5. ACTEMRA [Suspect]
     Active Substance: TOCILIZUMAB
     Indication: Polymyalgia rheumatica
     Route: 058
  6. ACTEMRA [Suspect]
     Active Substance: TOCILIZUMAB

REACTIONS (12)
  - Diabetes mellitus [Unknown]
  - Pain [Unknown]
  - Blood glucose increased [Unknown]
  - Back pain [Unknown]
  - Memory impairment [Unknown]
  - Back disorder [Unknown]
  - Glycosylated haemoglobin decreased [Unknown]
  - Off label use [Unknown]
  - Product prescribing error [Unknown]
  - Illness [Unknown]
  - Malaise [Not Recovered/Not Resolved]
  - Back disorder [Not Recovered/Not Resolved]
